FAERS Safety Report 13983020 (Version 1)
Quarter: 2017Q3

REPORT INFORMATION
  Report Type: Spontaneous
  Country: US (occurrence: US)
  Receive Date: 20170918
  Receipt Date: 20170918
  Transmission Date: 20171128
  Serious: Yes (Death, Other)
  Sender: FDA-Public Use
  Company Number: US-BRISTOL-MYERS SQUIBB COMPANY-BMS-2017-083343

PATIENT
  Sex: Female

DRUGS (1)
  1. OPDIVO [Suspect]
     Active Substance: NIVOLUMAB
     Indication: SARCOMA UTERUS
     Dosage: 152 MG, Q2WK
     Route: 065
     Dates: start: 20170622, end: 20170714

REACTIONS (2)
  - Death [Fatal]
  - Product use in unapproved indication [Unknown]
